FAERS Safety Report 6968699-3 (Version None)
Quarter: 2010Q3

REPORT INFORMATION
  Report Type: 
  Country: None (occurrence: None)
  Receive Date: 20100907
  Receipt Date: 20100805
  Transmission Date: 20110219
  Serious: No
  Sender: FDA-Public Use
  Company Number: US-BAYER-201019398BCC

PATIENT
  Age: 10 Year
  Sex: Female
  Weight: 34 kg

DRUGS (1)
  1. ALEVE (CAPLET) [Suspect]
     Indication: GLOSSODYNIA
     Dosage: UNIT DOSE: 220 MG
     Route: 048
     Dates: start: 20100805

REACTIONS (1)
  - NO ADVERSE EVENT [None]
